FAERS Safety Report 20061810 (Version 1)
Quarter: 2021Q4

REPORT INFORMATION
  Report Type: Spontaneous
  Country: ZA (occurrence: ZA)
  Receive Date: 20211112
  Receipt Date: 20211112
  Transmission Date: 20220303
  Serious: No
  Sender: FDA-Public Use
  Company Number: ZA-LUPIN PHARMACEUTICALS INC.-2021-21669

PATIENT
  Age: 57 Year
  Sex: Male

DRUGS (2)
  1. LOSARTAN POTASSIUM [Suspect]
     Active Substance: LOSARTAN POTASSIUM
     Indication: Hypertension
     Dosage: 100 MILLIGRAM
     Route: 048
     Dates: start: 202109
  2. ZOPICLONE [Concomitant]
     Active Substance: ZOPICLONE
     Indication: Sleep disorder
     Dosage: 7.5 MILLIGRAM
     Route: 048

REACTIONS (2)
  - Dizziness [Unknown]
  - Adverse event [Unknown]

NARRATIVE: CASE EVENT DATE: 20210101
